FAERS Safety Report 14478814 (Version 1)
Quarter: 2018Q1

REPORT INFORMATION
  Report Type: Report from Study
  Country: US (occurrence: US)
  Receive Date: 20180202
  Receipt Date: 20180202
  Transmission Date: 20180509
  Serious: Yes (Other)
  Sender: FDA-Public Use
  Company Number: US-CLINIGEN GROUP PLC/ CLINIGEN HEALTHCARE LTD-US-CLGN-17-00361

PATIENT
  Sex: Female

DRUGS (7)
  1. FOSCARNET SODIUM. [Suspect]
     Active Substance: FOSCARNET SODIUM
     Indication: CYTOMEGALOVIRUS GASTROINTESTINAL INFECTION
     Route: 042
     Dates: start: 20170705, end: 20170830
  2. GANCICLOVIR. [Concomitant]
     Active Substance: GANCICLOVIR
     Indication: CYTOMEGALOVIRUS GASTROINTESTINAL INFECTION
     Dates: start: 20170412, end: 20170606
  3. GANCICLOVIR. [Concomitant]
     Active Substance: GANCICLOVIR
     Dates: start: 20170628, end: 20170705
  4. FOSCARNET SODIUM. [Suspect]
     Active Substance: FOSCARNET SODIUM
     Route: 042
     Dates: start: 20171011
  5. VALGANCICLOVIR. [Concomitant]
     Active Substance: VALGANCICLOVIR
     Indication: CYTOMEGALOVIRUS GASTROINTESTINAL INFECTION
     Dates: start: 20170609, end: 20170628
  6. VALGANCICLOVIR. [Concomitant]
     Active Substance: VALGANCICLOVIR
     Dates: start: 20170908, end: 20171012
  7. LEFLUNOMIDE. [Concomitant]
     Active Substance: LEFLUNOMIDE
     Indication: CYTOMEGALOVIRUS GASTROINTESTINAL INFECTION
     Dates: start: 20170330

REACTIONS (5)
  - Renal failure [Unknown]
  - Pharyngeal ulceration [Unknown]
  - Dialysis [Unknown]
  - Off label use [Unknown]
  - Mouth ulceration [Unknown]

NARRATIVE: CASE EVENT DATE: 2017
